FAERS Safety Report 10633362 (Version 2)
Quarter: 2014Q4

REPORT INFORMATION
  Report Type: Spontaneous
  Country: US (occurrence: US)
  Receive Date: 20141205
  Receipt Date: 20141205
  Transmission Date: 20150529
  Serious: No
  Sender: FDA-Public Use
  Company Number: US-BRISTOL-MYERS SQUIBB COMPANY-21222138

PATIENT
  Age: 63 Year
  Sex: Female
  Weight: 88.89 kg

DRUGS (3)
  1. APIDRA [Concomitant]
     Active Substance: INSULIN GLULISINE
  2. BYETTA [Suspect]
     Active Substance: EXENATIDE
     Indication: TYPE 2 DIABETES MELLITUS
     Dosage: 5YEARS:ONGOING?INT ON 18JUL2014
     Route: 058
  3. LANTUS [Concomitant]
     Active Substance: INSULIN GLARGINE

REACTIONS (1)
  - Drug dose omission [Unknown]

NARRATIVE: CASE EVENT DATE: 20140718
